FAERS Safety Report 12588045 (Version 3)
Quarter: 2016Q3

REPORT INFORMATION
  Report Type: Spontaneous
  Country: FI (occurrence: FI)
  Receive Date: 20160725
  Receipt Date: 20160929
  Transmission Date: 20161109
  Serious: Yes (Hospitalization)
  Sender: FDA-Public Use
  Company Number: CA-BAXTER-2016BAX038719

PATIENT
  Age: 56 Year
  Sex: Female
  Weight: 71 kg

DRUGS (2)
  1. EXTRANEAL [Suspect]
     Active Substance: CALCIUM CHLORIDE\ICODEXTRIN\MAGNESIUM CHLORIDE\SODIUM CHLORIDE\SODIUM LACTATE
     Indication: PERITONEAL DIALYSIS
     Route: 033
     Dates: start: 20160710
  2. EXTRANEAL [Suspect]
     Active Substance: CALCIUM CHLORIDE\ICODEXTRIN\MAGNESIUM CHLORIDE\SODIUM CHLORIDE\SODIUM LACTATE
     Route: 033
     Dates: start: 20160710

REACTIONS (5)
  - Skin reaction [Unknown]
  - Pneumonia [Recovered/Resolved]
  - Product container issue [Unknown]
  - Intercepted medication error [Unknown]
  - Peritonitis bacterial [Recovering/Resolving]

NARRATIVE: CASE EVENT DATE: 20160714
